FAERS Safety Report 16743205 (Version 1)
Quarter: 2019Q3

REPORT INFORMATION
  Report Type: Report from Study
  Country: None (occurrence: CA)
  Receive Date: 20190827
  Receipt Date: 20190827
  Transmission Date: 20191005
  Serious: Yes (Hospitalization, Other)
  Sender: FDA-Public Use
  Company Number: CA-ABBVIE-19K-028-2899633-00

PATIENT
  Age: 39 Year
  Sex: Male

DRUGS (1)
  1. HUMIRA [Suspect]
     Active Substance: ADALIMUMAB
     Indication: CROHN^S DISEASE
     Route: 058
     Dates: start: 20100225

REACTIONS (9)
  - Abdominal pain [Not Recovered/Not Resolved]
  - Diarrhoea [Not Recovered/Not Resolved]
  - Inflammation [Not Recovered/Not Resolved]
  - Haemorrhage [Not Recovered/Not Resolved]
  - Anaemia [Not Recovered/Not Resolved]
  - Rectal haemorrhage [Recovered/Resolved]
  - Feeling abnormal [Not Recovered/Not Resolved]
  - Malaise [Not Recovered/Not Resolved]
  - Large intestinal ulcer [Not Recovered/Not Resolved]

NARRATIVE: CASE EVENT DATE: 2018
